FAERS Safety Report 8614818-2 (Version None)
Quarter: 2012Q3

REPORT INFORMATION
  Report Type: 
  Country: None (occurrence: None)
  Receive Date: 20120823
  Receipt Date: 20120815
  Transmission Date: 20120928
  Serious: Yes (Hospitalization)
  Sender: FDA-Public Use
  Company Number: US-SANOFI-AVENTIS-2012SA058867

PATIENT
  Sex: Female
  Weight: 95 kg

DRUGS (2)
  1. LOVENOX [Suspect]
     Dosage: INITIALLY ON 100MG TWICE DAILY BASED ON HER WEIGHT OF 95KGS.
     Route: 065
  2. LOVENOX [Suspect]
     Route: 065
     Dates: start: 20120101

REACTIONS (3)
  - MATERNAL EXPOSURE DURING PREGNANCY [None]
  - VOMITING [None]
  - DEEP VEIN THROMBOSIS [None]
